FAERS Safety Report 5291444-7 (Version None)
Quarter: 2007Q2

REPORT INFORMATION
  Report Type: 
  Country: None (occurrence: None)
  Receive Date: 20070402
  Receipt Date: 20070329
  Transmission Date: 20071010
  Serious: Yes (Death)
  Sender: FDA-Public Use
  Company Number: THQ2007A00194

PATIENT
  Age: 77 Year
  Sex: Male

DRUGS (22)
  1. LANSOPRAZOLE [Suspect]
     Dosage: 30 MG (30 MG, 1 IN 1 D) UNKNOWN
  2. ASPIRIN [Suspect]
     Dosage: UNK (75 MG) UNKNOWN
  3. ATORVASTATIN CALCIUM [Suspect]
     Dosage: (10 MG) UNKNOWN
  4. BECLOMETHASONE DIPROPIONATE [Suspect]
     Dosage: 100 MCG (50 MCG, 2 IN 1 D) RESPIRATORY (INHALATION)
     Route: 055
  5. DEXAMETHASONE [Suspect]
     Dosage: (2 MG) UNKNOWN
  6. DILTIAZEM [Suspect]
     Dosage: 120 MG (60 MG, 2 IN 1 D) UNKNOWN
  7. DOSULEPIN [Suspect]
     Dosage: 75 MG (75 MG, 1 IN 1 D) UNKNOWN
  8. FRUMIL [Suspect]
  9. FUROSEMIDE [Suspect]
     Dosage: 80 MG (80 MG, 1 IN 1 D) UNKNOWN
  10. GAVISCON [Suspect]
     Dosage: 40 ML (10 ML, 4 IN 1 D) UNKNOWN
  11. LACTULOSE [Suspect]
     Dosage: (3.35 G) UNKNOWN
  12. METOCLOPRAMIDE [Suspect]
     Dosage: 30 MG (10 MG, 3 IN 1 D) UNKNOWN
  13. NITROGLYCERIN [Suspect]
     Dosage: (400 MG) UNKNOWN
  14. NOZINAN (LEVOMEPROMAZINE) [Suspect]
     Dosage: 100 MG (25 MG, 4 IN 1 D) UNKNOWN
  15. OXYCODONE HCL [Suspect]
     Dosage: 40 MG (20 MG, 2 IN 1 D) UNKNOWN
  16. OXYGEN [Suspect]
     Dosage: RESPIRATORY (INHALATION)
     Route: 055
  17. COMBIVENT [Suspect]
     Indication: CHRONIC OBSTRUCTIVE PULMONARY DISEASE
     Dosage: (4 IN 1 D) RESPIRATORY (INHALATION)
     Route: 055
     Dates: start: 20030617, end: 20040513
  18. SALBUTAMOL [Suspect]
     Dosage: (100 MCG, AS REQUIRED) RESPIRATORY (INHALATION)
  19. SPIRIVA [Suspect]
     Indication: CHRONIC OBSTRUCTIVE PULMONARY DISEASE
     Dosage: (18 MCG) RESPIRATORY (INHALATION)
     Route: 055
     Dates: start: 20030617
  20. SPIRONOLACTONE [Suspect]
     Dosage: (50 MG) UNKNOWN
  21. SYMBICORT [Suspect]
     Dosage: (2 IN 1 D) RESPIRATORY (INHALATION)
     Route: 055
  22. TEMAZEPAM [Suspect]
     Dosage: 10 MG (10 MG, 1 IN 1 D) UNKNOWN

REACTIONS (2)
  - LUNG NEOPLASM MALIGNANT [None]
  - MESOTHELIOMA [None]
